FAERS Safety Report 12582553 (Version 1)
Quarter: 2016Q3

REPORT INFORMATION
  Report Type: Spontaneous
  Country: IL (occurrence: IL)
  Receive Date: 20160722
  Receipt Date: 20160722
  Transmission Date: 20161109
  Serious: Yes (Other)
  Sender: FDA-Public Use
  Company Number: PHHY2016IL098039

PATIENT
  Age: 72 Year
  Sex: Male

DRUGS (3)
  1. SOM230 [Suspect]
     Active Substance: PASIREOTIDE
     Indication: NEUROENDOCRINE TUMOUR
     Dosage: 20 MG, QMO
     Route: 065
  2. AFINITOR [Suspect]
     Active Substance: EVEROLIMUS
     Indication: METASTASES TO LIVER
     Dosage: 10 MG, QD
     Route: 065
  3. SOM230 [Suspect]
     Active Substance: PASIREOTIDE
     Dosage: 40 MG, QMO
     Route: 065

REACTIONS (8)
  - Neutropenia [Unknown]
  - Product use issue [Unknown]
  - Mouth ulceration [Unknown]
  - Malignant neoplasm progression [Unknown]
  - Fatigue [Unknown]
  - Anaemia [Unknown]
  - Epistaxis [Unknown]
  - Metastases to liver [Unknown]
